FAERS Safety Report 21715956 (Version 1)
Quarter: 2022Q4

REPORT INFORMATION
  Report Type: Spontaneous
  Country: US (occurrence: None)
  Receive Date: 20221210
  Receipt Date: 20221210
  Transmission Date: 20230113
  Serious: Yes (Hospitalization)
  Sender: FDA-Public Use
  Company Number: None

PATIENT
  Sex: Male
  Weight: 129.1 kg

DRUGS (9)
  1. CYCLOPHOSPHAMIDE [Suspect]
     Active Substance: CYCLOPHOSPHAMIDE
  2. CYTARABINE [Concomitant]
     Active Substance: CYTARABINE
  3. DEXAMETHASONE [Concomitant]
     Active Substance: DEXAMETHASONE
  4. DOXORUBICIN HYDROCHLORIDE [Concomitant]
     Active Substance: DOXORUBICIN HYDROCHLORIDE
  5. METHOTREXATE [Concomitant]
     Active Substance: METHOTREXATE
  6. PEG-L-ASPARAGINASE (PEGASPARASE, ONCOSPAR) [Concomitant]
  7. RITUXIMAB [Concomitant]
     Active Substance: RITUXIMAB
  8. THIOGUANINE(6-TG) [Concomitant]
  9. VINCRISTINE SULFATE [Concomitant]
     Active Substance: VINCRISTINE SULFATE

REACTIONS (10)
  - B precursor type acute leukaemia [None]
  - Heart rate increased [None]
  - Platelet count decreased [None]
  - Neutrophil count decreased [None]
  - Blood potassium decreased [None]
  - Blood calcium decreased [None]
  - Blood lactic acid increased [None]
  - Procalcitonin increased [None]
  - Blood creatinine decreased [None]
  - Influenza A virus test positive [None]

NARRATIVE: CASE EVENT DATE: 20221204
